FAERS Safety Report 10899916 (Version 2)
Quarter: 2016Q1

REPORT INFORMATION
  Report Type: Spontaneous
  Country: US (occurrence: US)
  Receive Date: 20150310
  Receipt Date: 20160329
  Transmission Date: 20160525
  Serious: Yes (Other)
  Sender: FDA-Public Use
  Company Number: US-GLAXOSMITHKLINE-US2015030095

PATIENT
  Age: 56 Year
  Sex: Female

DRUGS (14)
  1. LISINOPRIL. [Concomitant]
     Active Substance: LISINOPRIL
  2. COREG CR [Suspect]
     Active Substance: CARVEDILOL PHOSPHATE
     Dosage: 40 MG AND 80 MG TABLETS
  3. COREG CR [Suspect]
     Active Substance: CARVEDILOL PHOSPHATE
     Indication: CORONARY ARTERY DISEASE
     Dosage: 80 MG, QD
     Route: 048
     Dates: start: 2009
  4. FUROSEMIDE. [Concomitant]
     Active Substance: FUROSEMIDE
  5. NOVOLIN 70/30 [Concomitant]
     Active Substance: INSULIN HUMAN
  6. SIMVASTATIN. [Concomitant]
     Active Substance: SIMVASTATIN
  7. LEVOTHYROXINE. [Concomitant]
     Active Substance: LEVOTHYROXINE
  8. KEFLEX [Suspect]
     Active Substance: CEPHALEXIN
  9. ASPIRIN. [Concomitant]
     Active Substance: ASPIRIN
  10. CLOPIDOGREL [Concomitant]
     Active Substance: CLOPIDOGREL BISULFATE
  11. ISOSORBIDE. [Concomitant]
     Active Substance: ISOSORBIDE
  12. NOVOLIN R [Concomitant]
     Active Substance: INSULIN HUMAN
  13. GLIPIZIDE. [Concomitant]
     Active Substance: GLIPIZIDE
  14. RANEXA [Concomitant]
     Active Substance: RANOLAZINE

REACTIONS (4)
  - Diabetic foot [Recovering/Resolving]
  - Drug hypersensitivity [Unknown]
  - Wound infection staphylococcal [Recovering/Resolving]
  - Peripheral swelling [Unknown]

NARRATIVE: CASE EVENT DATE: 20150205
